FAERS Safety Report 12178850 (Version 3)
Quarter: 2016Q4

REPORT INFORMATION
  Report Type: Spontaneous
  Country: US (occurrence: US)
  Receive Date: 20160314
  Receipt Date: 20161117
  Transmission Date: 20170207
  Serious: No
  Sender: FDA-Public Use
  Company Number: US-SA-2016SA010574

PATIENT
  Age: 68 Year
  Sex: Male

DRUGS (5)
  1. TOUJEO [Suspect]
     Active Substance: INSULIN GLARGINE
     Indication: TYPE 2 DIABETES MELLITUS
     Dosage: DOSE:40 UNIT(S)
     Route: 065
     Dates: start: 20160111
  2. LANTUS [Concomitant]
     Active Substance: INSULIN GLARGINE
     Dosage: VIALS DOSE:100 UNIT(S)
  3. LANTUS [Concomitant]
     Active Substance: INSULIN GLARGINE
     Dosage: VIALS DOSE:40 UNIT(S)
  4. SOLOSTAR [Suspect]
     Active Substance: DEVICE
     Indication: TYPE 2 DIABETES MELLITUS
     Dates: start: 20160111
  5. NOVOLOG [Concomitant]
     Active Substance: INSULIN ASPART
     Dosage: SLIDING SCALE

REACTIONS (3)
  - Drug administration error [Unknown]
  - Blood glucose increased [Recovering/Resolving]
  - Drug administered in wrong device [Unknown]

NARRATIVE: CASE EVENT DATE: 201601
